FAERS Safety Report 5011138-2 (Version None)
Quarter: 2006Q2

REPORT INFORMATION
  Report Type: 
  Country: None (occurrence: None)
  Receive Date: 20060523
  Receipt Date: 20060510
  Transmission Date: 20061013
  Serious: Yes (Other)
  Sender: FDA-Public Use
  Company Number: HQWYE257410MAY06

PATIENT
  Age: 91 Year
  Sex: Male

DRUGS (1)
  1. PANTOPRAZOLE SODIUM [Suspect]
     Indication: GASTROOESOPHAGEAL REFLUX DISEASE
     Dosage: 20 MG 1X PER 1 DAY
     Route: 048
     Dates: start: 20060314, end: 20060515

REACTIONS (3)
  - HEPATOCELLULAR DAMAGE [None]
  - HEPATOTOXICITY [None]
  - JAUNDICE [None]
